FAERS Safety Report 7274514-3 (Version None)
Quarter: 2011Q1

REPORT INFORMATION
  Report Type: 
  Country: None (occurrence: None)
  Receive Date: 20110201
  Receipt Date: 20110201
  Transmission Date: 20110831
  Serious: Yes (Other)
  Sender: FDA-Public Use
  Company Number: None

PATIENT
  Age: 66 Year
  Sex: Female

DRUGS (1)
  1. BONIVA [Suspect]
     Indication: OSTEOPOROSIS

REACTIONS (4)
  - INJECTION SITE PAIN [None]
  - INJECTION SITE MASS [None]
  - PRODUCT QUALITY ISSUE [None]
  - INJECTION SITE INFLAMMATION [None]
